FAERS Safety Report 12545034 (Version 2)
Quarter: 2016Q3

REPORT INFORMATION
  Report Type: Report from Study
  Country: US (occurrence: US)
  Receive Date: 20160711
  Receipt Date: 20160928
  Transmission Date: 20161109
  Serious: No
  Sender: FDA-Public Use
  Company Number: GXBR2016US002085

PATIENT
  Sex: Female

DRUGS (1)
  1. OMNITROPE [Suspect]
     Active Substance: SOMATROPIN
     Indication: ACCIDENTAL EXPOSURE TO PRODUCT
     Dosage: UNK MG, UNK
     Route: 061

REACTIONS (2)
  - Accidental exposure to product [Recovered/Resolved]
  - Burning sensation [Recovered/Resolved]
